FAERS Safety Report 4907119-7 (Version None)
Quarter: 2006Q1

REPORT INFORMATION
  Report Type: 
  Country: None (occurrence: None)
  Receive Date: 20060206
  Receipt Date: 20060130
  Transmission Date: 20060701
  Serious: Yes (Hospitalization)
  Sender: FDA-Public Use
  Company Number: 2005143526

PATIENT
  Age: 40 Year
  Sex: Female

DRUGS (7)
  1. LYRICA [Suspect]
     Indication: HEADACHE
     Dosage: 300 MG (150 MG, 2 IN 1 D), ORAL
     Route: 048
  2. MIGRALEVE (BUCLIZINE HYDROCHLORIDE, CODEINE PHOSPHATE, PARACETAMOL) [Suspect]
     Indication: HEADACHE
     Dosage: ORAL
     Route: 048
     Dates: start: 20051007
  3. SOCIAN (AMISULPRIDE) [Concomitant]
  4. TRITICUM (TRAZODONE HYDROCHLORIDE) [Concomitant]
  5. ETORICOXIB (ETORICOXIB) [Concomitant]
  6. OMEPRAZOLE [Concomitant]
  7. BIALZEPAM (DIAZEPAM) [Concomitant]

REACTIONS (4)
  - CONDITION AGGRAVATED [None]
  - DRUG ABUSER [None]
  - DRUG DEPENDENCE [None]
  - HEADACHE [None]
